FAERS Safety Report 10434422 (Version 1)
Quarter: 2014Q3

REPORT INFORMATION
  Report Type: Spontaneous
  Country: US (occurrence: US)
  Receive Date: 20140905
  Receipt Date: 20140905
  Transmission Date: 20150326
  Serious: Yes (Hospitalization, Other)
  Sender: FDA-Public Use
  Company Number: US-ELI_LILLY_AND_COMPANY-US201409000536

PATIENT
  Age: 60 Year
  Sex: Male

DRUGS (3)
  1. HUMALOG [Suspect]
     Active Substance: INSULIN LISPRO
     Indication: TYPE 2 DIABETES MELLITUS
     Dosage: UNK
     Route: 065
     Dates: start: 1994
  2. HUMALOG [Suspect]
     Active Substance: INSULIN LISPRO
     Dosage: UNK, PRN
     Route: 065
  3. LANTUS [Concomitant]
     Active Substance: INSULIN GLARGINE
     Dosage: 30 U, UNK

REACTIONS (11)
  - Hemiplegia [Unknown]
  - Malaise [Unknown]
  - Convulsion [Unknown]
  - Pruritus generalised [Recovered/Resolved]
  - Ischaemic stroke [Unknown]
  - Blood glucose increased [Unknown]
  - Incorrect product storage [Unknown]
  - Renal failure [Unknown]
  - Pain [Unknown]
  - Infection [Unknown]
  - Contusion [Unknown]

NARRATIVE: CASE EVENT DATE: 200808
